FAERS Safety Report 20046500 (Version 3)
Quarter: 2022Q1

REPORT INFORMATION
  Report Type: Spontaneous
  Country: None (occurrence: US)
  Receive Date: 20211109
  Receipt Date: 20220124
  Transmission Date: 20220423
  Serious: Yes (Other)
  Sender: FDA-Public Use
  Company Number: US-Ajanta Pharma USA Inc.-2121610

PATIENT
  Age: 76 Year
  Sex: Female
  Weight: 58.182 kg

DRUGS (2)
  1. VORICONAZOLE [Suspect]
     Active Substance: VORICONAZOLE
     Indication: Wound infection fungal
     Route: 048
     Dates: start: 20210923
  2. KEFLEX [Concomitant]
     Active Substance: CEPHALEXIN

REACTIONS (11)
  - Hallucination [Recovered/Resolved]
  - Disorientation [Recovered/Resolved]
  - Headache [Unknown]
  - Rash [Not Recovered/Not Resolved]
  - Anxiety [Unknown]
  - Middle insomnia [Unknown]
  - Insomnia [Unknown]
  - Intentional dose omission [Unknown]
  - Blister [Unknown]
  - Pruritus [Unknown]
  - Malaise [Unknown]

NARRATIVE: CASE EVENT DATE: 20210101
